FAERS Safety Report 9815016 (Version 4)
Quarter: 2014Q1

REPORT INFORMATION
  Report Type: Spontaneous
  Country: IL (occurrence: IL)
  Receive Date: 20140114
  Receipt Date: 20140210
  Transmission Date: 20141002
  Serious: Yes (Other)
  Sender: FDA-Public Use
  Company Number: IL-ROCHE-1332485

PATIENT
  Age: 40 Year
  Sex: Male

DRUGS (4)
  1. MIRCERA [Suspect]
     Indication: NEPHROGENIC ANAEMIA
     Route: 065
     Dates: start: 2011
  2. MIRCERA [Suspect]
     Route: 065
     Dates: start: 2011
  3. MIRCERA [Suspect]
     Route: 065
  4. TEGRETOL [Suspect]
     Indication: EPILEPSY
     Route: 065

REACTIONS (3)
  - Reticulocytopenia [Not Recovered/Not Resolved]
  - Anaemia [Not Recovered/Not Resolved]
  - Haemolysis [Not Recovered/Not Resolved]
